FAERS Safety Report 17062829 (Version 4)
Quarter: 2020Q1

REPORT INFORMATION
  Report Type: Other
  Country: DE (occurrence: DE)
  Receive Date: 20191122
  Receipt Date: 20200310
  Transmission Date: 20200409
  Serious: Yes (Death, Life-Threatening, Hospitalization, Other)
  Sender: FDA-Public Use
  Company Number: DE-CELLTRION INC.-2019DE026567

PATIENT

DRUGS (44)
  1. CYCLOPHOSPHAMIDE. [Suspect]
     Active Substance: CYCLOPHOSPHAMIDE
     Dosage: 1133 MG, UNK
     Route: 041
     Dates: start: 20190510, end: 20190510
  2. DOXORUBICIN [Suspect]
     Active Substance: DOXORUBICIN
     Dosage: 76 MG, UNK
     Route: 041
     Dates: start: 20190510, end: 20190510
  3. VINCRISTINE [Suspect]
     Active Substance: VINCRISTINE
     Dosage: 1 MG, UNK
     Route: 041
     Dates: start: 20190510, end: 20190510
  4. METOCLOPRAMID [Concomitant]
     Active Substance: METOCLOPRAMIDE
     Indication: PROPHYLAXIS
     Dosage: UNK
     Route: 048
     Dates: start: 20190130
  5. ALLOPURINOL. [Concomitant]
     Active Substance: ALLOPURINOL
     Indication: GENERAL PHYSICAL HEALTH DETERIORATION
     Dosage: UNK
     Route: 048
     Dates: start: 20190108
  6. CYCLOPHOSPHAMIDE. [Suspect]
     Active Substance: CYCLOPHOSPHAMIDE
     Indication: DIFFUSE LARGE B-CELL LYMPHOMA
     Dosage: 1133 MG, UNK
     Route: 041
     Dates: start: 20190125, end: 20190125
  7. CYCLOPHOSPHAMIDE. [Suspect]
     Active Substance: CYCLOPHOSPHAMIDE
     Dosage: 1133 MG, UNK
     Route: 041
     Dates: start: 20190308, end: 20190308
  8. DOXORUBICIN [Suspect]
     Active Substance: DOXORUBICIN
     Dosage: 76 MG, UNK
     Route: 041
     Dates: start: 20190329, end: 20190329
  9. ALLOPURINOL. [Concomitant]
     Active Substance: ALLOPURINOL
     Indication: PROPHYLAXIS
     Dosage: UNK
     Route: 048
     Dates: start: 20190315
  10. RITUXIMAB (UNKNOWN) [Suspect]
     Active Substance: RITUXIMAB
     Dosage: 566 MG, UNK
     Route: 041
     Dates: start: 20190705
  11. RITUXIMAB (UNKNOWN) [Suspect]
     Active Substance: RITUXIMAB
     Dosage: 566 MG, UNK
     Route: 041
     Dates: start: 20190409, end: 20190409
  12. RITUXIMAB (UNKNOWN) [Suspect]
     Active Substance: RITUXIMAB
     Dosage: 566 MG, UNK
     Route: 041
     Dates: start: 20190208, end: 20190208
  13. RITUXIMAB (UNKNOWN) [Suspect]
     Active Substance: RITUXIMAB
     Dosage: 566 MG, UNK
     Route: 041
     Dates: start: 20190319, end: 20190319
  14. DOXORUBICIN [Suspect]
     Active Substance: DOXORUBICIN
     Dosage: 76 MG, UNK
     Route: 041
     Dates: start: 20190215, end: 20190215
  15. VINCRISTINE [Suspect]
     Active Substance: VINCRISTINE
     Indication: DIFFUSE LARGE B-CELL LYMPHOMA
     Dosage: 1 MG, UNK
     Route: 041
     Dates: start: 20190125, end: 20190125
  16. ZANTAC [Concomitant]
     Active Substance: RANITIDINE HYDROCHLORIDE
     Indication: PRODUCT USED FOR UNKNOWN INDICATION
     Dosage: UNK
     Route: 042
     Dates: start: 20190208, end: 20190517
  17. FENISTIL [Concomitant]
     Active Substance: DIMETHINDENE
     Indication: PRODUCT USED FOR UNKNOWN INDICATION
     Dosage: UNK
     Route: 042
     Dates: start: 20190208, end: 20190517
  18. PREDNISONE. [Suspect]
     Active Substance: PREDNISONE
     Dosage: 350 MG, UNK
     Route: 048
     Dates: start: 20190309, end: 20190314
  19. PREDNISONE. [Suspect]
     Active Substance: PREDNISONE
     Dosage: 350 MG, UNK
     Route: 048
     Dates: start: 20190419, end: 20190424
  20. PREDNISONE. [Suspect]
     Active Substance: PREDNISONE
     Dosage: 350 MG, UNK
     Route: 048
     Dates: start: 20190511, end: 20190517
  21. VINCRISTINE [Suspect]
     Active Substance: VINCRISTINE
     Dosage: 1 MG, UNK
     Route: 041
     Dates: start: 20190329, end: 20190329
  22. KEVATRIL [Concomitant]
     Active Substance: GRANISETRON HYDROCHLORIDE
     Indication: PRODUCT USED FOR UNKNOWN INDICATION
     Dosage: UNK
     Route: 042
     Dates: start: 20190125, end: 20190510
  23. CYCLOPHOSPHAMIDE. [Suspect]
     Active Substance: CYCLOPHOSPHAMIDE
     Dosage: 1133 MG, UNK
     Route: 041
     Dates: start: 20190329, end: 20190329
  24. MCP [Concomitant]
     Active Substance: METOCLOPRAMIDE HYDROCHLORIDE
     Indication: PROPHYLAXIS
     Dosage: UNK
     Route: 048
     Dates: start: 20190130
  25. UROMITEXAN [Concomitant]
     Active Substance: MESNA
     Indication: PRODUCT USED FOR UNKNOWN INDICATION
     Dosage: UNK
     Route: 042
     Dates: start: 20190125, end: 20190510
  26. ACCOFIL [Concomitant]
     Active Substance: FILGRASTIM
     Indication: PROPHYLAXIS
     Dosage: 30 OT
     Route: 058
     Dates: start: 20190222, end: 20190429
  27. RITUXIMAB (UNKNOWN) [Suspect]
     Active Substance: RITUXIMAB
     Dosage: 566 MG, UNK
     Route: 041
     Dates: start: 20190226, end: 20190226
  28. DOXORUBICIN [Suspect]
     Active Substance: DOXORUBICIN
     Dosage: 76 MG, UNK
     Route: 041
     Dates: start: 20190418, end: 20190418
  29. VINCRISTINE [Suspect]
     Active Substance: VINCRISTINE
     Dosage: 1 MG, UNK
     Route: 041
     Dates: start: 20190215, end: 20190215
  30. MAGNESIUM [Concomitant]
     Active Substance: MAGNESIUM
     Indication: PROPHYLAXIS
     Dosage: UNK
     Route: 048
     Dates: start: 20190426
  31. OMEDOC [Concomitant]
     Indication: PRODUCT USED FOR UNKNOWN INDICATION
     Dosage: UNK
     Route: 048
     Dates: start: 20190130
  32. RITUXIMAB (UNKNOWN) [Suspect]
     Active Substance: RITUXIMAB
     Dosage: 566 MG, UNK
     Route: 041
     Dates: start: 20190614, end: 20190614
  33. PREDNISONE. [Suspect]
     Active Substance: PREDNISONE
     Indication: DIFFUSE LARGE B-CELL LYMPHOMA
     Dosage: 350 MG, UNK
     Route: 048
     Dates: start: 20190126, end: 20190131
  34. CYCLOPHOSPHAMIDE. [Suspect]
     Active Substance: CYCLOPHOSPHAMIDE
     Dosage: 1133 MG, UNK
     Route: 041
     Dates: start: 20190215, end: 20190215
  35. CYCLOPHOSPHAMIDE. [Suspect]
     Active Substance: CYCLOPHOSPHAMIDE
     Dosage: 1133 MG, UNK
     Route: 041
     Dates: start: 20190418, end: 20190418
  36. DOXORUBICIN [Suspect]
     Active Substance: DOXORUBICIN
     Indication: DIFFUSE LARGE B-CELL LYMPHOMA
     Dosage: 50 MG, UNK
     Route: 041
     Dates: start: 20190125, end: 20190125
  37. VINCRISTINE [Suspect]
     Active Substance: VINCRISTINE
     Dosage: 1 MG, UNK
     Route: 041
     Dates: start: 20190308, end: 20190308
  38. VINCRISTINE [Suspect]
     Active Substance: VINCRISTINE
     Dosage: 1 MG, UNK
     Route: 041
     Dates: start: 20190418, end: 20190418
  39. PARACETAMOL [Concomitant]
     Active Substance: ACETAMINOPHEN
     Indication: PROPHYLAXIS
     Dosage: UNK
     Route: 048
     Dates: start: 20190108
  40. RITUXIMAB (UNKNOWN) [Suspect]
     Active Substance: RITUXIMAB
     Indication: DIFFUSE LARGE B-CELL LYMPHOMA
     Dosage: 566 MG, UNK
     Route: 041
     Dates: start: 20190426, end: 20190426
  41. RITUXIMAB (UNKNOWN) [Suspect]
     Active Substance: RITUXIMAB
     Dosage: 566 MG, UNK
     Route: 041
     Dates: start: 20190517, end: 20190517
  42. PREDNISONE. [Suspect]
     Active Substance: PREDNISONE
     Dosage: 350 MG, UNK
     Route: 048
     Dates: start: 20190216, end: 20190221
  43. DOXORUBICIN [Suspect]
     Active Substance: DOXORUBICIN
     Dosage: 76 MG, UNK
     Route: 041
     Dates: start: 20190308, end: 20190308
  44. PREDNISOLON [Concomitant]
     Active Substance: PREDNISOLONE
     Indication: PROPHYLAXIS
     Dosage: UNK
     Route: 042
     Dates: start: 20190125, end: 20190705

REACTIONS (27)
  - Back pain [Recovered/Resolved]
  - Hypersensitivity [Recovered/Resolved]
  - Arthralgia [Unknown]
  - Vertigo [Recovered/Resolved]
  - Nausea [Recovered/Resolved]
  - Neoplasm progression [Fatal]
  - Alopecia [Not Recovered/Not Resolved]
  - Dizziness [Unknown]
  - Renal pain [Recovered/Resolved]
  - Muscle spasms [Recovered/Resolved]
  - Back pain [Not Recovered/Not Resolved]
  - Sciatica [Recovered/Resolved]
  - Lumbosacral radiculopathy [Recovered/Resolved]
  - Fatigue [Unknown]
  - Skin irritation [Recovered/Resolved]
  - Nail injury [Unknown]
  - Pyrexia [Recovered/Resolved]
  - Asthenia [Unknown]
  - Cough [Recovered/Resolved]
  - Vomiting [Recovered/Resolved]
  - Oropharyngeal pain [Recovered/Resolved]
  - Back pain [Recovered/Resolved]
  - Constipation [Recovered/Resolved]
  - Anosmia [Not Recovered/Not Resolved]
  - Decreased appetite [Not Recovered/Not Resolved]
  - Nausea [Recovered/Resolved]
  - Fatigue [Recovered/Resolved]

NARRATIVE: CASE EVENT DATE: 20190208
